FAERS Safety Report 11889841 (Version 3)
Quarter: 2016Q1

REPORT INFORMATION
  Report Type: Report from Study
  Country: JP (occurrence: JP)
  Receive Date: 20160105
  Receipt Date: 20160302
  Transmission Date: 20160526
  Serious: Yes (Hospitalization, Other)
  Sender: FDA-Public Use
  Company Number: JP-BRISTOL-MYERS SQUIBB COMPANY-BMS-2015-093118

PATIENT
  Age: 71 Year
  Sex: Male

DRUGS (6)
  1. APIXABAN [Suspect]
     Active Substance: APIXABAN
     Indication: THROMBOSIS PROPHYLAXIS
     Dosage: 5 MG, BID
     Route: 048
     Dates: start: 20131126, end: 20150622
  2. APIXABAN [Suspect]
     Active Substance: APIXABAN
     Dosage: 5 MG, BID
     Route: 048
     Dates: start: 20150626, end: 20150714
  3. LANIRAPID [Concomitant]
     Active Substance: METILDIGOXIN
     Indication: HYPERTENSION
     Dosage: 1 TAB, QD
     Route: 048
     Dates: end: 20150715
  4. APIXABAN [Suspect]
     Active Substance: APIXABAN
     Dosage: 5 MG, BID
     Route: 048
     Dates: start: 20150805
  5. ATELEC [Concomitant]
     Active Substance: CILNIDIPINE
     Indication: HYPERTENSION
     Dosage: 1 TAB, QD
     Route: 048
     Dates: end: 20150714
  6. BLOPRESS [Concomitant]
     Active Substance: CANDESARTAN CILEXETIL
     Indication: HYPERTENSION
     Dosage: 1 TAB, QD
     Route: 048
     Dates: end: 20150715

REACTIONS (4)
  - Acute kidney injury [Recovered/Resolved]
  - Rotator cuff syndrome [Recovering/Resolving]
  - Delirium [Recovering/Resolving]
  - Joint arthroplasty [Unknown]

NARRATIVE: CASE EVENT DATE: 20150128
